FAERS Safety Report 9681460 (Version 1)
Quarter: 2013Q4

REPORT INFORMATION
  Report Type: Other
  Country: FR (occurrence: FR)
  Receive Date: 20131111
  Receipt Date: 20131111
  Transmission Date: 20140711
  Serious: Yes (Life-Threatening, Other)
  Sender: FDA-Public Use
  Company Number: FR-BRISTOL-MYERS SQUIBB COMPANY-19788926

PATIENT
  Age: 58 Year
  Sex: Female

DRUGS (4)
  1. EXENATIDE PEN DISPOSABLE [Suspect]
     Route: 058
  2. LEVOMEPROMAZINE [Suspect]
  3. CLONAZEPAM [Suspect]
  4. ZOPICLONE [Suspect]

REACTIONS (3)
  - Coma [Recovering/Resolving]
  - Hypoglycaemia [Recovered/Resolved]
  - Overdose [Unknown]
